FAERS Safety Report 4665719-6 (Version None)
Quarter: 2005Q2

REPORT INFORMATION
  Report Type: 
  Country: None (occurrence: None)
  Receive Date: 20050519
  Receipt Date: 20050503
  Transmission Date: 20051028
  Serious: Yes (Hospitalization)
  Sender: FDA-Public Use
  Company Number: DE-BOEHRINGER INGELHEIM PHARMACEUTICALS, INC.-2005-DE-01684DE

PATIENT
  Sex: Female
  Weight: 66 kg

DRUGS (1)
  1. AGGRENOX [Suspect]
     Indication: CEREBROVASCULAR ACCIDENT
     Dosage: STRENGTH: DIPYRIDAMOLE 200 MG, ACETYLSALICYLIC ACID 25 MG
     Route: 048
     Dates: start: 20010101

REACTIONS (1)
  - DEEP VEIN THROMBOSIS [None]
